FAERS Safety Report 12179827 (Version 1)
Quarter: 2016Q1

REPORT INFORMATION
  Report Type: Report from Study
  Country: FR (occurrence: FR)
  Receive Date: 20160315
  Receipt Date: 20160315
  Transmission Date: 20160526
  Serious: Yes (Other)
  Sender: FDA-Public Use
  Company Number: FR-UCBSA-2016009292

PATIENT
  Age: 58 Year
  Sex: Female

DRUGS (2)
  1. METOJECT [Suspect]
     Active Substance: METHOTREXATE SODIUM
     Indication: RHEUMATOID ARTHRITIS
     Dosage: 20 MG, WEEKLY (QW)
     Route: 058
     Dates: start: 20120125, end: 20121027
  2. CERTOLIZUMAB PEGOL RA [Suspect]
     Active Substance: CERTOLIZUMAB PEGOL
     Indication: RHEUMATOID ARTHRITIS
     Dosage: 200 MG, EV 15 DAYS
     Route: 058
     Dates: start: 20120627

REACTIONS (6)
  - Back pain [Recovering/Resolving]
  - Wrist fracture [Recovered/Resolved]
  - Bone pain [Recovering/Resolving]
  - Hepatitis [Recovered/Resolved]
  - Abdominal pain upper [Recovering/Resolving]
  - Fibrocystic breast disease [Recovering/Resolving]

NARRATIVE: CASE EVENT DATE: 20120708
